FAERS Safety Report 25682586 (Version 2)
Quarter: 2025Q3

REPORT INFORMATION
  Report Type: Spontaneous
  Country: US (occurrence: US)
  Receive Date: 20250814
  Receipt Date: 20250901
  Transmission Date: 20251021
  Serious: Yes (Disabling, Other)
  Sender: TEVA
  Company Number: US-TEVA-VS-3360467

PATIENT
  Age: 73 Year
  Sex: Male
  Weight: 110.22 kg

DRUGS (9)
  1. CARVEDILOL [Suspect]
     Active Substance: CARVEDILOL
     Indication: Hypertension
     Route: 065
  2. ASPIRIN [Concomitant]
     Active Substance: ASPIRIN
     Indication: Product used for unknown indication
     Route: 065
  3. SEMAGLUTIDE [Suspect]
     Active Substance: SEMAGLUTIDE
     Indication: Obesity
     Dosage: OZEMPIC, 8MG/3MM
     Route: 065
     Dates: start: 202310
  4. SEMAGLUTIDE [Suspect]
     Active Substance: SEMAGLUTIDE
     Indication: Obesity
     Dosage: OZEMPIC, 2MG/1.5ML
     Route: 065
     Dates: start: 202304
  5. SEMAGLUTIDE [Suspect]
     Active Substance: SEMAGLUTIDE
     Indication: Obesity
     Dosage: OZEMPIC, 4MG/3MM
     Route: 065
     Dates: start: 202306, end: 202309
  6. SEMAGLUTIDE [Suspect]
     Active Substance: SEMAGLUTIDE
     Indication: Obesity
     Dosage: OZEMPIC, 2MG/1.5ML
     Route: 065
     Dates: start: 202305
  7. AMLODIPINE [Suspect]
     Active Substance: AMLODIPINE BESYLATE
     Indication: Hypertension
     Route: 065
  8. HYDROCHLOROTHIAZIDE [Suspect]
     Active Substance: HYDROCHLOROTHIAZIDE
     Indication: Hypertension
     Route: 065
  9. PREDNISONE [Suspect]
     Active Substance: PREDNISONE
     Indication: Optic ischaemic neuropathy
     Route: 048

REACTIONS (5)
  - Weight decreased [Unknown]
  - Optic ischaemic neuropathy [Recovering/Resolving]
  - Drug ineffective for unapproved indication [Unknown]
  - Blindness [Recovering/Resolving]
  - Orthostatic hypotension [Recovering/Resolving]
